FAERS Safety Report 5429777-3 (Version None)
Quarter: 2007Q3

REPORT INFORMATION
  Report Type: 
  Country: None (occurrence: None)
  Receive Date: 20070731
  Receipt Date: 20070731
  Transmission Date: 20080115
  Serious: No
  Sender: FDA-Public Use
  Company Number: US200704002940

PATIENT
  Age: 57 Year
  Sex: Female
  Weight: 72.6 kg

DRUGS (7)
  1. BYETTA [Suspect]
     Indication: DIABETES MELLITUS
     Dosage: 5 UG, DAILY (1/D), SUBCUTANEOUS, 5 UG, 2/D, SUBCUTANEOUS, 10 UG, 2/D, SUBCUTANEOUS
     Route: 058
     Dates: start: 20070406, end: 20070413
  2. BYETTA [Suspect]
     Indication: DIABETES MELLITUS
     Dosage: 5 UG, DAILY (1/D), SUBCUTANEOUS, 5 UG, 2/D, SUBCUTANEOUS, 10 UG, 2/D, SUBCUTANEOUS
     Route: 058
     Dates: start: 20070414, end: 20070424
  3. BYETTA [Suspect]
     Indication: DIABETES MELLITUS
     Dosage: 5 UG, DAILY (1/D), SUBCUTANEOUS, 5 UG, 2/D, SUBCUTANEOUS, 10 UG, 2/D, SUBCUTANEOUS
     Route: 058
     Dates: start: 20070425
  4. BYETTA [Suspect]
  5. METFORMIN HCL [Concomitant]
  6. ACTOS [Concomitant]
  7. AMARYL [Concomitant]

REACTIONS (10)
  - ABDOMINAL DISTENSION [None]
  - BLOOD GLUCOSE INCREASED [None]
  - CHILLS [None]
  - DECREASED APPETITE [None]
  - DIARRHOEA [None]
  - DRUG INEFFECTIVE [None]
  - FEELING ABNORMAL [None]
  - FEELING JITTERY [None]
  - INJECTION SITE IRRITATION [None]
  - NAUSEA [None]
